FAERS Safety Report 11581426 (Version 1)
Quarter: 2015Q4

REPORT INFORMATION
  Report Type: Spontaneous
  Country: US (occurrence: US)
  Receive Date: 20151001
  Receipt Date: 20151001
  Transmission Date: 20160304
  Serious: No
  Sender: FDA-Public Use
  Company Number: US-ROCHE-673391

PATIENT
  Sex: Female

DRUGS (2)
  1. COPEGUS [Suspect]
     Active Substance: RIBAVIRIN
     Indication: HEPATITIS C
     Dosage: DIVIDED DOSES
     Route: 065
     Dates: start: 20090202, end: 20100202
  2. PEGASYS [Suspect]
     Active Substance: PEGINTERFERON ALFA-2A
     Indication: HEPATITIS C
     Dosage: PRE-FILLED SYRINGE
     Route: 065
     Dates: start: 20090202, end: 20100202

REACTIONS (11)
  - Amnesia [Not Recovered/Not Resolved]
  - Confusional state [Not Recovered/Not Resolved]
  - Dysphonia [Not Recovered/Not Resolved]
  - Thyroid function test abnormal [Not Recovered/Not Resolved]
  - Tremor [Not Recovered/Not Resolved]
  - Fatigue [Not Recovered/Not Resolved]
  - Dyspnoea [Not Recovered/Not Resolved]
  - Feeling abnormal [Not Recovered/Not Resolved]
  - Weight decreased [Not Recovered/Not Resolved]
  - White blood cell count decreased [Not Recovered/Not Resolved]
  - Muscle twitching [Not Recovered/Not Resolved]
